FAERS Safety Report 12212944 (Version 2)
Quarter: 2016Q2

REPORT INFORMATION
  Report Type: Report from Study
  Country: US (occurrence: US)
  Receive Date: 20160328
  Receipt Date: 20160425
  Transmission Date: 20160815
  Serious: No
  Sender: FDA-Public Use
  Company Number: US-AMGEN-USASL2016034575

PATIENT
  Age: 58 Year
  Sex: Female

DRUGS (1)
  1. ENBREL [Suspect]
     Active Substance: ETANERCEPT
     Indication: RHEUMATOID ARTHRITIS
     Dosage: 50 MG, 1 WEEKLY
     Route: 065
     Dates: start: 20160226

REACTIONS (11)
  - Hypersensitivity [Unknown]
  - Malaise [Recovering/Resolving]
  - Oropharyngeal pain [Unknown]
  - Cough [Recovering/Resolving]
  - Wheezing [Unknown]
  - Dyspnoea [Unknown]
  - Aphonia [Unknown]
  - Pulmonary pain [Unknown]
  - Laryngitis [Unknown]
  - Head discomfort [Unknown]
  - Ear pain [Unknown]

NARRATIVE: CASE EVENT DATE: 2016
